FAERS Safety Report 22103733 (Version 1)
Quarter: 2023Q1

REPORT INFORMATION
  Report Type: Spontaneous
  Country: CA (occurrence: CA)
  Receive Date: 20230316
  Receipt Date: 20230316
  Transmission Date: 20230417
  Serious: Yes (Other)
  Sender: FDA-Public Use
  Company Number: None

PATIENT
  Age: 69 Year
  Sex: Male

DRUGS (18)
  1. MORPHINE SULFATE [Suspect]
     Active Substance: MORPHINE SULFATE
     Indication: Migraine
     Dosage: 1.0 DOSAGE FORM, DAILY
     Route: 065
  2. AMITRIPTYLINE [Suspect]
     Active Substance: AMITRIPTYLINE
     Indication: Product used for unknown indication
     Dosage: 2.0 DOSAGE FORM
     Route: 065
  3. AMITRIPTYLINE [Suspect]
     Active Substance: AMITRIPTYLINE
     Dosage: 4.0 DOSAGE FORM
     Route: 065
  4. ATORVASTATIN CALCIUM [Suspect]
     Active Substance: ATORVASTATIN CALCIUM
     Indication: Migraine
     Dosage: 1.0 DOSAGE FORM
     Route: 065
  5. BISACODYL [Suspect]
     Active Substance: BISACODYL
     Indication: Product used for unknown indication
     Dosage: 1.0 DOSAGE FORM
     Route: 065
  6. CARBAMAZEPINE [Suspect]
     Active Substance: CARBAMAZEPINE
     Indication: Migraine
     Dosage: 1.0 DOSAGE FORM
     Route: 065
  7. CIPROFLOXACIN [Suspect]
     Active Substance: CIPROFLOXACIN
     Indication: Migraine
     Dosage: 1.0 DOSAGE FORM, BID
     Route: 065
  8. DOCUSATE [Suspect]
     Active Substance: DOCUSATE
     Indication: Migraine
     Dosage: 1.0 DOSAGE FORM
     Route: 065
  9. DOCUSATE [Suspect]
     Active Substance: DOCUSATE
     Dosage: 3.0 DOSAGE FORM
     Route: 065
  10. MOMETASONE FUROATE [Suspect]
     Active Substance: MOMETASONE FUROATE
     Indication: Product used for unknown indication
     Dosage: 2.0 DOSAGE FORM (REPORTED 6 TIME)
     Route: 065
  11. PREGABALIN [Suspect]
     Active Substance: PREGABALIN
     Indication: Migraine
     Dosage: UNK
     Route: 065
  12. RABEPRAZOLE SODIUM [Suspect]
     Active Substance: RABEPRAZOLE SODIUM
     Indication: Migraine
     Dosage: 1.0 DOSAGE FORM, DAILY
     Route: 065
  13. SULFASALAZINE [Suspect]
     Active Substance: SULFASALAZINE
     Indication: Migraine
     Dosage: UNK
     Route: 065
  14. GLYCOPYRRONIUM\INDACATEROL [Suspect]
     Active Substance: GLYCOPYRRONIUM\INDACATEROL
     Indication: Migraine
     Dosage: 1.0 DOSAGE FORM, DAILY
     Route: 055
  15. BIAXIN [Concomitant]
     Active Substance: CLARITHROMYCIN
     Indication: Product used for unknown indication
     Dosage: 2 DOSAGE FORM, DAILY
     Route: 065
  16. CEPHALEXIN MONOHYDRATE [Concomitant]
     Active Substance: CEPHALEXIN MONOHYDRATE
     Indication: Product used for unknown indication
     Dosage: 4 DOSAGE FORM, QID
     Route: 065
  17. PREDNISONE [Concomitant]
     Active Substance: PREDNISONE
     Indication: Product used for unknown indication
     Dosage: UNK
     Route: 065
  18. MOXIFLOXACIN HYDROCHLORIDE [Concomitant]
     Active Substance: MOXIFLOXACIN HYDROCHLORIDE
     Indication: Product used for unknown indication
     Dosage: 1 DOSAGE FORM, DAILY
     Route: 065

REACTIONS (13)
  - Asthma [Unknown]
  - Clumsiness [Unknown]
  - Dizziness [Unknown]
  - Drug intolerance [Unknown]
  - Dysarthria [Unknown]
  - Dyskinesia [Unknown]
  - Limb injury [Unknown]
  - Oedema [Unknown]
  - Off label use [Unknown]
  - Pain [Unknown]
  - Respiration abnormal [Unknown]
  - Sitting disability [Unknown]
  - Speech disorder [Unknown]
